FAERS Safety Report 4395825-5 (Version None)
Quarter: 2004Q3

REPORT INFORMATION
  Report Type: 
  Country: None (occurrence: None)
  Receive Date: 20040708
  Receipt Date: 20040624
  Transmission Date: 20050211
  Serious: Yes (Death)
  Sender: FDA-Public Use
  Company Number: US-JNJFOC-20040601951

PATIENT
  Age: 83 Year
  Sex: Female

DRUGS (10)
  1. DURAGESIC [Suspect]
     Indication: PAIN
     Dosage: 50 UG/HR, 1 IN 72 HOUR, TRANSDERMAL
     Route: 062
     Dates: start: 20040101, end: 20040327
  2. NEURONTIN [Concomitant]
  3. REGLAN [Concomitant]
  4. PEPSID (FAMOTIDINE) [Concomitant]
  5. PERCOCET [Concomitant]
  6. OXYCONTIN [Concomitant]
  7. ALPHAGAN [Concomitant]
  8. XALATAN [Concomitant]
  9. MOM (MAGNESIUM HYDROXIDE) [Concomitant]
  10. TIMOLOL MALEATE [Concomitant]

REACTIONS (1)
  - DEATH [None]
